FAERS Safety Report 12063035 (Version 1)
Quarter: 2016Q1

REPORT INFORMATION
  Report Type: Spontaneous
  Country: US (occurrence: US)
  Receive Date: 20160210
  Receipt Date: 20160210
  Transmission Date: 20160526
  Serious: No
  Sender: FDA-Public Use
  Company Number: US-ALLERGAN-1506271US

PATIENT
  Age: 52 Year
  Sex: Male
  Weight: 115.19 kg

DRUGS (4)
  1. BACTRIM [Concomitant]
     Active Substance: SULFAMETHOXAZOLE\TRIMETHOPRIM
     Indication: BLISTER
     Dosage: 1 DF, BID
  2. BOTOX [Suspect]
     Active Substance: ONABOTULINUMTOXINA
     Indication: URINARY INCONTINENCE
     Dosage: UNK UNK, SINGLE
     Route: 030
     Dates: start: 201412, end: 201412
  3. BACTROBAN [Concomitant]
     Active Substance: MUPIROCIN\MUPIROCIN CALCIUM
     Indication: BLISTER
     Dosage: 3 DF, TID
  4. CEPHALEXIN. [Concomitant]
     Active Substance: CEPHALEXIN
     Indication: BLISTER
     Dosage: 1 DF, Q6HR

REACTIONS (4)
  - Somnolence [Not Recovered/Not Resolved]
  - Drug ineffective [Not Recovered/Not Resolved]
  - Hypersomnia [Not Recovered/Not Resolved]
  - Muscular weakness [Not Recovered/Not Resolved]

NARRATIVE: CASE EVENT DATE: 20150403
